FAERS Safety Report 7136847-0 (Version None)
Quarter: 2010Q4

REPORT INFORMATION
  Report Type: 
  Country: None (occurrence: None)
  Receive Date: 20101119
  Receipt Date: 20101109
  Transmission Date: 20110411
  Serious: Yes (Other)
  Sender: FDA-Public Use
  Company Number: B0684891A

PATIENT
  Age: 41 Year
  Sex: Female

DRUGS (4)
  1. LAMIVUDINE [Suspect]
     Indication: HIV INFECTION
  2. STAVUDINE [Suspect]
     Indication: HIV INFECTION
  3. LOPINAVIR AND RITONAVIR [Suspect]
     Indication: HIV INFECTION
  4. EFAVIRENZ [Concomitant]

REACTIONS (8)
  - ABASIA [None]
  - AIDS ENCEPHALOPATHY [None]
  - CENTRAL NERVOUS SYSTEM LESION [None]
  - CONDITION AGGRAVATED [None]
  - HOLMES TREMOR [None]
  - IMMUNE RECONSTITUTION SYNDROME [None]
  - QUADRIPARESIS [None]
  - SOMNOLENCE [None]
